FAERS Safety Report 19454908 (Version 2)
Quarter: 2021Q3

REPORT INFORMATION
  Report Type: Spontaneous
  Country: US (occurrence: US)
  Receive Date: 20210623
  Receipt Date: 20210817
  Transmission Date: 20211014
  Serious: No
  Sender: FDA-Public Use
  Company Number: US-LUPIN PHARMACEUTICALS INC.-2021-09428

PATIENT
  Age: 77 Year
  Sex: Female

DRUGS (1)
  1. CLOBETASOL PROPIONATE CREAM USP, 0.05 [Suspect]
     Active Substance: CLOBETASOL PROPIONATE
     Indication: INFLAMMATION
     Dosage: UNK, BID
     Route: 061
     Dates: start: 20210607

REACTIONS (5)
  - Inflammation [Not Recovered/Not Resolved]
  - Drug ineffective [Unknown]
  - Pruritus [Unknown]
  - Onychoclasis [Unknown]
  - Product prescribing issue [Unknown]
